FAERS Safety Report 6721951-9 (Version None)
Quarter: 2010Q2

REPORT INFORMATION
  Report Type: 
  Country: None (occurrence: None)
  Receive Date: 20100512
  Receipt Date: 20100505
  Transmission Date: 20101027
  Serious: Yes (Hospitalization)
  Sender: FDA-Public Use
  Company Number: A0846683A

PATIENT
  Age: 38 Year
  Sex: Female

DRUGS (7)
  1. ARIXTRA [Suspect]
     Indication: PROTEIN S DEFICIENCY
     Dosage: 10MG PER DAY
     Route: 058
  2. DILAUDID [Concomitant]
  3. DIAZEPAM [Concomitant]
  4. ROBAXIN [Concomitant]
  5. SEROQUEL [Concomitant]
  6. AMBIEN [Concomitant]
  7. DIFLUCAN [Concomitant]

REACTIONS (4)
  - DRUG ADMINISTRATION ERROR [None]
  - FOREIGN BODY [None]
  - PRODUCT QUALITY ISSUE [None]
  - PULMONARY EMBOLISM [None]
